FAERS Safety Report 4485673-X (Version None)
Quarter: 2004Q4

REPORT INFORMATION
  Report Type: 
  Country: None (occurrence: None)
  Receive Date: 20041026
  Receipt Date: 20041019
  Transmission Date: 20050328
  Serious: Yes (Hospitalization)
  Sender: FDA-Public Use
  Company Number: PHNU2004DE03578

PATIENT
  Sex: Female

DRUGS (2)
  1. GLEEVEC [Suspect]
     Indication: CHRONIC MYELOID LEUKAEMIA
     Dosage: UP TO 600MG/DAY
     Route: 048
     Dates: end: 20040101
  2. GLEEVEC [Suspect]
     Route: 048
     Dates: start: 20040101

REACTIONS (2)
  - CARDIOTOXICITY [None]
  - MYOCARDIAL INFARCTION [None]
